FAERS Safety Report 18051786 (Version 1)
Quarter: 2020Q3

REPORT INFORMATION
  Report Type: Spontaneous
  Country: RU (occurrence: RU)
  Receive Date: 20200721
  Receipt Date: 20200721
  Transmission Date: 20201103
  Serious: Yes (Other)
  Sender: FDA-Public Use
  Company Number: NVSC2020RU202661

PATIENT
  Sex: Female

DRUGS (4)
  1. PALBOCICLIB [Suspect]
     Active Substance: PALBOCICLIB
     Dosage: 125 MG, QD (DAYS)
     Route: 048
     Dates: start: 201812, end: 202003
  2. FULVESTRANT. [Suspect]
     Active Substance: FULVESTRANT
     Indication: PRODUCT USED FOR UNKNOWN INDICATION
     Dosage: 500 MG, QMO
     Route: 065
     Dates: start: 201812
  3. PALBOCICLIB [Suspect]
     Active Substance: PALBOCICLIB
     Indication: PRODUCT USED FOR UNKNOWN INDICATION
     Dosage: 125 MG (5 DAYS OF THREE WEEKS OF THE 30 DAYS CYCLE)
     Route: 065
     Dates: start: 201806
  4. FULVESTRANT. [Suspect]
     Active Substance: FULVESTRANT
     Dosage: 500 MG, Q2MO (TWO TIMES PER MONTHS DURING THE FIRST MONTH, AND ONCE PER MONTH IN THE SUBSEQUENT MONT
     Route: 065

REACTIONS (7)
  - Sleep disorder [Unknown]
  - Intracranial mass [Recovering/Resolving]
  - Leukopenia [Unknown]
  - Nausea [Unknown]
  - Asthenia [Unknown]
  - Headache [Unknown]
  - Neutropenia [Unknown]

NARRATIVE: CASE EVENT DATE: 201911
